FAERS Safety Report 6850505-9 (Version None)
Quarter: 2010Q3

REPORT INFORMATION
  Report Type: 
  Country: None (occurrence: None)
  Receive Date: 20100716
  Receipt Date: 20090717
  Transmission Date: 20110219
  Serious: Yes (Other)
  Sender: FDA-Public Use
  Company Number: US-PFIZER INC-2007086990

PATIENT
  Sex: Female
  Weight: 83.447 kg

DRUGS (3)
  1. CHANTIX [Suspect]
     Dosage: UNK
     Dates: start: 20070901
  2. SYNTHROID [Concomitant]
  3. ZOLOFT [Concomitant]

REACTIONS (5)
  - FEELING ABNORMAL [None]
  - INSOMNIA [None]
  - IRRITABILITY [None]
  - PALPITATIONS [None]
  - WEIGHT INCREASED [None]
